FAERS Safety Report 15952616 (Version 6)
Quarter: 2020Q3

REPORT INFORMATION
  Report Type: Spontaneous
  Country: US (occurrence: US)
  Receive Date: 20190212
  Receipt Date: 20200902
  Transmission Date: 20201102
  Serious: No
  Sender: FDA-Public Use
  Company Number: US-PFIZER INC-2019062997

PATIENT
  Age: 53 Year
  Sex: Female
  Weight: 88.45 kg

DRUGS (1)
  1. DESVENLAFAXINE SUCCINATE MONOHYDRATE [Suspect]
     Active Substance: DESVENLAFAXINE SUCCINATE
     Indication: DEPRESSION
     Dosage: UNK

REACTIONS (3)
  - Drug ineffective [Unknown]
  - Withdrawal syndrome [Unknown]
  - Illness [Not Recovered/Not Resolved]
